FAERS Safety Report 4769857-9 (Version None)
Quarter: 2005Q3

REPORT INFORMATION
  Report Type: 
  Country: None (occurrence: None)
  Receive Date: 20050912
  Receipt Date: 20050629
  Transmission Date: 20060218
  Serious: No
  Sender: FDA-Public Use
  Company Number: 2005-01400

PATIENT
  Age: 57 Year
  Sex: Male
  Weight: 100.2 kg

DRUGS (2)
  1. VELCADE [Suspect]
     Dosage: 3.00 MG, 2/WEEK, INTRAVENOUS
     Route: 042
     Dates: start: 20050401
  2. VITAMIN B6 [Concomitant]

REACTIONS (5)
  - BRONCHITIS [None]
  - CHILLS [None]
  - PARAESTHESIA [None]
  - PYREXIA [None]
  - URINARY TRACT INFECTION [None]
